FAERS Safety Report 5178958-5 (Version None)
Quarter: 2006Q4

REPORT INFORMATION
  Report Type: 
  Country: None (occurrence: None)
  Receive Date: 20061213
  Receipt Date: 20061213
  Transmission Date: 20070319
  Serious: Yes (Hospitalization)
  Sender: FDA-Public Use
  Company Number: None

PATIENT
  Sex: Female
  Weight: 86.1834 kg

DRUGS (2)
  1. BEVACIZUMAB 400MG  GENETECH [Suspect]
     Indication: OVARIAN CANCER
     Dosage: 0 75 MG    D1 + D15   041
     Dates: start: 20060606, end: 20061030
  2. GEMCITABINE [Suspect]
     Indication: OVARIAN CANCER
     Dosage: 1600 MG    D1 + D15    041
     Dates: start: 20060606, end: 20061030

REACTIONS (9)
  - ANGIOMYOLIPOMA [None]
  - CHEST DISCOMFORT [None]
  - FEELING ABNORMAL [None]
  - MALIGNANT HYPERTENSION [None]
  - OEDEMA PERIPHERAL [None]
  - PLATELET COUNT DECREASED [None]
  - PROTEINURIA [None]
  - RENAL FAILURE [None]
  - RENAL MASS [None]
